FAERS Safety Report 16030062 (Version 2)
Quarter: 2019Q1

REPORT INFORMATION
  Report Type: Spontaneous
  Country: FR (occurrence: FR)
  Receive Date: 20190304
  Receipt Date: 20190312
  Transmission Date: 20190418
  Serious: Yes (Other)
  Sender: FDA-Public Use
  Company Number: FR-MYLANLABS-2019M1018394

PATIENT
  Age: 70 Year
  Sex: Male

DRUGS (15)
  1. CYCLOPHOSPHAMIDE. [Suspect]
     Active Substance: CYCLOPHOSPHAMIDE
     Indication: CHRONIC LYMPHOCYTIC LEUKAEMIA
  2. DOXORUBICIN [Suspect]
     Active Substance: DOXORUBICIN
     Indication: METASTASES TO KIDNEY
  3. CYCLOPHOSPHAMIDE. [Suspect]
     Active Substance: CYCLOPHOSPHAMIDE
     Indication: LYMPHOCYTOSIS
     Dosage: UNK (6 CYCLES)
     Route: 065
  4. ONCOVIN [Suspect]
     Active Substance: VINCRISTINE SULFATE
     Indication: LYMPHOCYTOSIS
     Dosage: UNK (6 CYCLES)
     Route: 065
  5. DOXORUBICIN [Suspect]
     Active Substance: DOXORUBICIN
     Indication: LYMPHOCYTOSIS
     Dosage: UNK (6 CYCLES)
     Route: 065
  6. PREDNISONE. [Suspect]
     Active Substance: PREDNISONE
     Indication: LYMPHOCYTOSIS
     Dosage: UNK (6 CYCLES)
     Route: 065
  7. CYCLOPHOSPHAMIDE. [Suspect]
     Active Substance: CYCLOPHOSPHAMIDE
     Indication: METASTASES TO KIDNEY
  8. RITUXIMAB. [Suspect]
     Active Substance: RITUXIMAB
     Indication: CHRONIC LYMPHOCYTIC LEUKAEMIA
  9. PREDNISONE. [Suspect]
     Active Substance: PREDNISONE
     Indication: CHRONIC LYMPHOCYTIC LEUKAEMIA
  10. DOXORUBICIN [Suspect]
     Active Substance: DOXORUBICIN
     Indication: CHRONIC LYMPHOCYTIC LEUKAEMIA
  11. ONCOVIN [Suspect]
     Active Substance: VINCRISTINE SULFATE
     Indication: METASTASES TO KIDNEY
  12. PREDNISONE. [Suspect]
     Active Substance: PREDNISONE
     Indication: METASTASES TO KIDNEY
  13. RITUXIMAB. [Suspect]
     Active Substance: RITUXIMAB
     Indication: LYMPHOCYTOSIS
     Dosage: UNK (6 CYCLES)
     Route: 065
  14. RITUXIMAB. [Suspect]
     Active Substance: RITUXIMAB
     Indication: METASTASES TO KIDNEY
  15. ONCOVIN [Suspect]
     Active Substance: VINCRISTINE SULFATE
     Indication: CHRONIC LYMPHOCYTIC LEUKAEMIA

REACTIONS (3)
  - B-cell lymphoma [Unknown]
  - Product use in unapproved indication [Unknown]
  - Diffuse large B-cell lymphoma [Unknown]
